FAERS Safety Report 15228431 (Version 1)
Quarter: 2018Q3

REPORT INFORMATION
  Report Type: Report from Study
  Country: US (occurrence: US)
  Receive Date: 20180801
  Receipt Date: 20180801
  Transmission Date: 20181010
  Serious: Yes (Other)
  Sender: FDA-Public Use
  Company Number: PHEH2018US031020

PATIENT
  Sex: Female
  Weight: 63.49 kg

DRUGS (1)
  1. GLATOPA [Suspect]
     Active Substance: GLATIRAMER ACETATE
     Indication: MULTIPLE SCLEROSIS
     Dosage: 20 MG, QD
     Route: 058
     Dates: start: 20180628

REACTIONS (3)
  - Multiple sclerosis relapse [Not Recovered/Not Resolved]
  - Device malfunction [Unknown]
  - Gait disturbance [Not Recovered/Not Resolved]
